FAERS Safety Report 5692196-9 (Version None)
Quarter: 2008Q2

REPORT INFORMATION
  Report Type: 
  Country: None (occurrence: None)
  Receive Date: 20080402
  Receipt Date: 20080331
  Transmission Date: 20081010
  Serious: Yes (Hospitalization)
  Sender: FDA-Public Use
  Company Number: B0514475A

PATIENT

DRUGS (1)
  1. VALTREX [Suspect]
     Indication: HERPES ZOSTER
     Route: 048

REACTIONS (6)
  - EATING DISORDER [None]
  - ENCEPHALITIS [None]
  - HALLUCINATION [None]
  - ORAL INTAKE REDUCED [None]
  - PYREXIA [None]
  - SOMNOLENCE [None]
